FAERS Safety Report 23942309 (Version 2)
Quarter: 2024Q2

REPORT INFORMATION
  Report Type: Report from Study
  Country: CA (occurrence: CA)
  Receive Date: 20240605
  Receipt Date: 20240606
  Transmission Date: 20240716
  Serious: Yes (Hospitalization)
  Sender: FDA-Public Use
  Company Number: CA-JNJFOC-20240478988

PATIENT
  Age: 7 Year
  Sex: Male

DRUGS (2)
  1. REMICADE [Suspect]
     Active Substance: INFLIXIMAB
     Indication: Colitis ulcerative
     Route: 041
     Dates: start: 20220720
  2. REMICADE [Suspect]
     Active Substance: INFLIXIMAB
     Dosage: 0,2,6 WEEKS
     Route: 041

REACTIONS (6)
  - Heart rate increased [Unknown]
  - Pyrexia [Unknown]
  - Hypotension [Unknown]
  - Colitis ulcerative [Not Recovered/Not Resolved]
  - Dehydration [Unknown]
  - Oropharyngeal pain [Unknown]

NARRATIVE: CASE EVENT DATE: 20240501
